FAERS Safety Report 12835756 (Version 2)
Quarter: 2016Q4

REPORT INFORMATION
  Report Type: Spontaneous
  Country: GB (occurrence: GB)
  Receive Date: 20161011
  Receipt Date: 20161012
  Transmission Date: 20170207
  Serious: Yes (Hospitalization, Other)
  Sender: FDA-Public Use
  Company Number: GB-IPSEN BIOPHARMACEUTICALS, INC.-2016-08325

PATIENT
  Age: 58 Year
  Sex: Female

DRUGS (2)
  1. LANREOTIDE AUTOGEL [Suspect]
     Active Substance: LANREOTIDE
     Indication: NEUROENDOCRINE TUMOUR
     Dosage: NOT REPORTED
     Route: 065
     Dates: start: 2000
  2. LANREOTIDE AUTOGEL [Suspect]
     Active Substance: LANREOTIDE
     Dosage: NOT REPORTED
     Route: 065

REACTIONS (8)
  - Omentectomy [Unknown]
  - Metastases to liver [Unknown]
  - Bile acid malabsorption [Unknown]
  - Colectomy [Unknown]
  - Metastases to lymph nodes [Unknown]
  - Diarrhoea [Recovering/Resolving]
  - Steatorrhoea [Unknown]
  - Gastrointestinal bacterial overgrowth [Unknown]

NARRATIVE: CASE EVENT DATE: 2004
